FAERS Safety Report 26112169 (Version 1)
Quarter: 2025Q4

REPORT INFORMATION
  Report Type: Spontaneous
  Country: EU (occurrence: EU)
  Receive Date: 20251202
  Receipt Date: 20251202
  Transmission Date: 20260117
  Serious: Yes (Other)
  Sender: MERCK SHARP & DOHME LLC
  Company Number: None

PATIENT
  Age: 45 Year
  Sex: Female

DRUGS (2)
  1. KEYTRUDA [Suspect]
     Active Substance: PEMBROLIZUMAB
     Indication: Triple negative breast cancer
     Dosage: TIME INTERVAL: CYCLICAL: 1 DOSAGE FORM?1 CYCLICAL
     Route: 042
  2. DOXORUBICIN HYDROCHLORIDE [Concomitant]
     Active Substance: DOXORUBICIN HYDROCHLORIDE
     Indication: Triple negative breast cancer
     Dosage: 240 MG/M^2, TOTAL
     Route: 042
     Dates: start: 20250703, end: 20250820

REACTIONS (2)
  - Troponin I increased [Not Recovered/Not Resolved]
  - Immune-mediated pericarditis [Not Recovered/Not Resolved]

NARRATIVE: CASE EVENT DATE: 20251021
